FAERS Safety Report 22993450 (Version 2)
Quarter: 2024Q1

REPORT INFORMATION
  Report Type: Report from Study
  Country: US (occurrence: US)
  Receive Date: 20230927
  Receipt Date: 20240301
  Transmission Date: 20240410
  Serious: No
  Sender: FDA-Public Use
  Company Number: US-002147023-NVSC2022US201084

PATIENT
  Sex: Female

DRUGS (8)
  1. OMNITROPE [Suspect]
     Active Substance: SOMATROPIN
     Dosage: 2.1 MG, QD
     Route: 058
  2. OMNITROPE [Suspect]
     Active Substance: SOMATROPIN
     Dosage: 2.1 MG, QD
     Route: 058
  3. OMNITROPE [Suspect]
     Active Substance: SOMATROPIN
     Dosage: 1.2 MG, ONCE DAILY
     Route: 058
     Dates: start: 20230921
  4. OMNITROPE [Suspect]
     Active Substance: SOMATROPIN
     Dosage: 1.2 MG, ONCE DAILY
     Route: 058
     Dates: start: 20230921
  5. OMNITROPE [Suspect]
     Active Substance: SOMATROPIN
     Dosage: 1.2 MG, QD, 2 DOSE EVERY N/A
     Route: 058
     Dates: start: 20230921
  6. OMNITROPE [Suspect]
     Active Substance: SOMATROPIN
     Dosage: 1.2 MG, QD, 2 DOSE EVERY N/A
     Route: 058
     Dates: start: 20230921
  7. OMNITROPE [Suspect]
     Active Substance: SOMATROPIN
     Indication: Growth hormone deficiency
     Dosage: UNK
     Route: 065
  8. OMNITROPE [Suspect]
     Active Substance: SOMATROPIN
     Indication: Growth hormone deficiency
     Dosage: UNK
     Route: 065

REACTIONS (6)
  - Malaise [Recovered/Resolved]
  - Injection site pain [Not Recovered/Not Resolved]
  - Device issue [Unknown]
  - Poor quality device used [Unknown]
  - Wrong technique in device usage process [Unknown]
  - Device difficult to use [Recovered/Resolved]
